FAERS Safety Report 4708714-0 (Version None)
Quarter: 2005Q2

REPORT INFORMATION
  Report Type: 
  Country: None (occurrence: None)
  Receive Date: 20050628
  Receipt Date: 20050608
  Transmission Date: 20051028
  Serious: Yes (Hospitalization)
  Sender: FDA-Public Use
  Company Number: SAGL-ZLB/05/38/AUS

PATIENT
  Age: 11 Year
  Sex: Female

DRUGS (1)
  1. SANDOGLOBULIN [Suspect]
     Indication: GUILLAIN-BARRE SYNDROME
     Dosage: ONCE, I.V.
     Route: 042
     Dates: start: 20041231, end: 20041231

REACTIONS (5)
  - HEADACHE [None]
  - NAUSEA [None]
  - NEUTROPENIA [None]
  - URTICARIA [None]
  - VOMITING [None]
